FAERS Safety Report 8311145-8 (Version None)
Quarter: 2012Q2

REPORT INFORMATION
  Report Type: 
  Country: None (occurrence: None)
  Receive Date: 20120425
  Receipt Date: 20110329
  Transmission Date: 20120825
  Serious: No
  Sender: FDA-Public Use
  Company Number: US-MYLANLABS-2011S1006623

PATIENT
  Age: 37 Year
  Sex: Male

DRUGS (3)
  1. LORAZEPAM [Suspect]
     Indication: ANXIETY
     Route: 048
     Dates: start: 20110315
  2. SERTRALINE HYDROCHLORIDE [Suspect]
     Indication: DEPRESSION
     Dates: start: 20110301
  3. BENICAR [Concomitant]
     Indication: BLOOD PRESSURE

REACTIONS (1)
  - DRY MOUTH [None]
